FAERS Safety Report 13918549 (Version 3)
Quarter: 2017Q4

REPORT INFORMATION
  Report Type: Spontaneous
  Country: US (occurrence: US)
  Receive Date: 20170829
  Receipt Date: 20171025
  Transmission Date: 20180320
  Serious: Yes (Hospitalization)
  Sender: FDA-Public Use
  Company Number: US-VIFOR (INTERNATIONAL) INC.-VIT-2017-08762

PATIENT
  Age: 64 Year
  Sex: Male

DRUGS (19)
  1. HYDROCHLOROTHIAZIDE. [Concomitant]
     Active Substance: HYDROCHLOROTHIAZIDE
  2. DIVALPROEX SODIUM. [Concomitant]
     Active Substance: DIVALPROEX SODIUM
  3. LACTOBACILLUS ACIDOPHILUS [Concomitant]
     Active Substance: LACTOBACILLUS ACIDOPHILUS
  4. APLISOL [Concomitant]
     Active Substance: TUBERCULIN PURIFIED PROTEIN DERIVATIVE
  5. BISAC-EVAC [Concomitant]
     Active Substance: BISACODYL
  6. OXYCONTIN [Concomitant]
     Active Substance: OXYCODONE HYDROCHLORIDE
  7. COLECALCIFEROL [Concomitant]
     Active Substance: CHOLECALCIFEROL
  8. VELTASSA [Suspect]
     Active Substance: PATIROMER
     Indication: HYPERKALAEMIA
     Route: 048
     Dates: start: 20170803, end: 2017
  9. BACLOFEN. [Concomitant]
     Active Substance: BACLOFEN
  10. GABAPENTIN. [Concomitant]
     Active Substance: GABAPENTIN
  11. ELIQUIS [Concomitant]
     Active Substance: APIXABAN
  12. MILK OF MAGNESIA [Concomitant]
     Active Substance: MAGNESIUM HYDROXIDE
  13. MACROGOL [Concomitant]
     Active Substance: POLYETHYLENE GLYCOLS
  14. SODIUM BICARBONATE. [Concomitant]
     Active Substance: SODIUM BICARBONATE
  15. DOCUSATE SODIUM. [Concomitant]
     Active Substance: DOCUSATE SODIUM
  16. DIPHENHIST [Concomitant]
     Active Substance: DIPHENHYDRAMINE HYDROCHLORIDE
  17. MELATONIN [Concomitant]
     Active Substance: MELATONIN
  18. ONDANSETRON HYDROCHLORIDE. [Concomitant]
     Active Substance: ONDANSETRON HYDROCHLORIDE
  19. VITAMINS NOS [Concomitant]
     Active Substance: VITAMINS

REACTIONS (2)
  - Haemorrhage urinary tract [Not Recovered/Not Resolved]
  - Unevaluable event [Unknown]

NARRATIVE: CASE EVENT DATE: 20170804
